FAERS Safety Report 17962080 (Version 1)
Quarter: 2020Q2

REPORT INFORMATION
  Report Type: Spontaneous
  Country: US (occurrence: US)
  Receive Date: 20200630
  Receipt Date: 20200630
  Transmission Date: 20200714
  Serious: No
  Sender: FDA-Public Use
  Company Number: US-PFIZER INC-2020249529

PATIENT
  Age: 49 Year
  Sex: Female

DRUGS (5)
  1. GABAPENTIN. [Suspect]
     Active Substance: GABAPENTIN
     Indication: DEPRESSION
  2. GABAPENTIN. [Suspect]
     Active Substance: GABAPENTIN
     Indication: ANXIETY
  3. GABAPENTIN. [Suspect]
     Active Substance: GABAPENTIN
     Indication: STRESS
  4. GABAPENTIN. [Suspect]
     Active Substance: GABAPENTIN
     Indication: MENOPAUSAL SYMPTOMS
  5. GABAPENTIN. [Suspect]
     Active Substance: GABAPENTIN
     Indication: MOOD SWINGS
     Dosage: UNK

REACTIONS (2)
  - Drug ineffective for unapproved indication [Unknown]
  - Off label use [Unknown]
